FAERS Safety Report 7300849-1 (Version None)
Quarter: 2011Q1

REPORT INFORMATION
  Report Type: 
  Country: None (occurrence: None)
  Receive Date: 20110103
  Receipt Date: 20100416
  Transmission Date: 20110831
  Serious: Yes (Other)
  Sender: FDA-Public Use
  Company Number: US-004334

PATIENT
  Age: 33 Year
  Sex: Female

DRUGS (4)
  1. MULTIHANCE [Suspect]
     Indication: HEADACHE
     Dosage: 20ML ONCE INTRAVENOUS
     Route: 042
     Dates: start: 20100408, end: 20100408
  2. MULTIHANCE [Suspect]
     Indication: DIZZINESS
     Dosage: 20ML ONCE INTRAVENOUS
     Route: 042
     Dates: start: 20100408, end: 20100408
  3. MULTIHANCE [Suspect]
     Indication: CONFUSIONAL STATE
     Dosage: 20ML ONCE INTRAVENOUS
     Route: 042
     Dates: start: 20100408, end: 20100408
  4. MULTIHANCE [Suspect]
     Indication: NUCLEAR MAGNETIC RESONANCE IMAGING
     Dosage: 20ML ONCE INTRAVENOUS
     Route: 042
     Dates: start: 20100408, end: 20100408

REACTIONS (1)
  - HYPERSENSITIVITY [None]
